FAERS Safety Report 8438083-4 (Version None)
Quarter: 2012Q2

REPORT INFORMATION
  Report Type: 
  Country: None (occurrence: None)
  Receive Date: 20120614
  Receipt Date: 20120606
  Transmission Date: 20120825
  Serious: Yes (Other)
  Sender: FDA-Public Use
  Company Number: US-CELGENEUS-163-21660-12061214

PATIENT

DRUGS (5)
  1. BEVACIZUMAB [Suspect]
     Dosage: 5 MILLIGRAM/KILOGRAM
     Route: 041
  2. ABRAXANE [Suspect]
     Dosage: 100 MILLIGRAM/SQ. METER
     Route: 041
  3. FLUOROURACIL [Suspect]
     Dosage: 180 MILLIGRAM/SQ. METER
     Route: 041
  4. OXALIPLATIN [Suspect]
     Dosage: 75 MILLIGRAM/SQ. METER
     Route: 041
  5. LEUCOVORIN CALCIUM [Suspect]
     Dosage: 20 MILLIGRAM/SQ. METER
     Route: 041

REACTIONS (11)
  - DIARRHOEA [None]
  - ANAEMIA [None]
  - PANCREATIC CARCINOMA [None]
  - NEUROPATHY PERIPHERAL [None]
  - HYPERTENSION [None]
  - RENAL FAILURE [None]
  - STOMATITIS [None]
  - FATIGUE [None]
  - THROMBOCYTOPENIA [None]
  - NAUSEA [None]
  - NEUTROPENIA [None]
